FAERS Safety Report 17292307 (Version 1)
Quarter: 2020Q1

REPORT INFORMATION
  Report Type: Spontaneous
  Country: US (occurrence: US)
  Receive Date: 20200119
  Receipt Date: 20200119
  Transmission Date: 20200409
  Serious: No
  Sender: FDA-Public Use
  Company Number: None

PATIENT
  Age: 24 Year
  Sex: Female

DRUGS (1)
  1. NEXPLANON [Suspect]
     Active Substance: ETONOGESTREL
     Indication: CONTRACEPTION

REACTIONS (16)
  - Dizziness [None]
  - Mood swings [None]
  - Constipation [None]
  - Metrorrhagia [None]
  - Headache [None]
  - Anxiety [None]
  - Nausea [None]
  - Suicidal ideation [None]
  - Food aversion [None]
  - Weight decreased [None]
  - Muscle spasms [None]
  - Abdominal pain [None]
  - Fatigue [None]
  - Depression [None]
  - Decreased appetite [None]
  - Abdominal distension [None]
